FAERS Safety Report 19052255 (Version 1)
Quarter: 2021Q1

REPORT INFORMATION
  Report Type: Spontaneous
  Country: US (occurrence: US)
  Receive Date: 20210324
  Receipt Date: 20210324
  Transmission Date: 20210420
  Serious: No
  Sender: FDA-Public Use
  Company Number: US-JNJFOC-20210328157

PATIENT
  Age: 55 Year
  Sex: Female

DRUGS (1)
  1. SPRAVATO [Suspect]
     Active Substance: ESKETAMINE
     Indication: DEPRESSION
     Route: 045

REACTIONS (3)
  - Dissociation [Recovered/Resolved]
  - Restlessness [Unknown]
  - Anxiety [Unknown]

NARRATIVE: CASE EVENT DATE: 20210315
